FAERS Safety Report 15215819 (Version 2)
Quarter: 2018Q3

REPORT INFORMATION
  Report Type: Report from Study
  Country: US (occurrence: US)
  Receive Date: 20180730
  Receipt Date: 20180813
  Transmission Date: 20181010
  Serious: Yes (Other)
  Sender: FDA-Public Use
  Company Number: US-TEVA-2018-US-934840

PATIENT
  Age: 66 Year
  Sex: Male

DRUGS (3)
  1. HYDROXYCARBAMIDE [Suspect]
     Active Substance: HYDROXYUREA
     Indication: CHEMOTHERAPY
     Dosage: ON DAY ?3 TO ?1
     Route: 065
  2. CYCLOPHOSPHAMIDE. [Suspect]
     Active Substance: CYCLOPHOSPHAMIDE
     Indication: CHEMOTHERAPY
     Dosage: ON DAY 13 TO 17
     Route: 065
  3. BLINATUMOMAB [Suspect]
     Active Substance: BLINATUMOMAB
     Indication: ACUTE LYMPHOCYTIC LEUKAEMIA
     Route: 065

REACTIONS (1)
  - Bacteraemia [Unknown]
